FAERS Safety Report 7136845-7 (Version None)
Quarter: 2010Q4

REPORT INFORMATION
  Report Type: 
  Country: None (occurrence: None)
  Receive Date: 20101119
  Receipt Date: 20101104
  Transmission Date: 20110411
  Serious: Yes (Hospitalization)
  Sender: FDA-Public Use
  Company Number: 021293

PATIENT
  Sex: Female

DRUGS (11)
  1. CERTOLIZUMAB PEGOL (CERTOLIZUMAB PEGOL) [Suspect]
     Indication: RHEUMATOID ARTHRITIS
     Dosage: (200 MG 1X/2 WEEKS SUBCUTANEOUS)
     Route: 058
     Dates: start: 20100806
  2. PREDNISOLONE [Concomitant]
  3. TACROLIMUS [Concomitant]
  4. LOXOPROFEN SODIUM [Concomitant]
  5. ALFACALCIDOL [Concomitant]
  6. ALENDRONATE SODIUM [Concomitant]
  7. CLARITHROMYCIN [Concomitant]
  8. NETICONAZOLE HYDROCHLORIDE [Concomitant]
  9. REBAMIPIDE [Concomitant]
  10. ITOPRIDE HYDROCHLORIDE [Concomitant]
  11. LANSOPRAZOLE [Concomitant]

REACTIONS (2)
  - INTESTINAL POLYP [None]
  - OCCULT BLOOD POSITIVE [None]
